FAERS Safety Report 4281292-9 (Version None)
Quarter: 2004Q1

REPORT INFORMATION
  Report Type: 
  Country: None (occurrence: None)
  Receive Date: 20040112
  Receipt Date: 20030312
  Transmission Date: 20041129
  Serious: Yes (Other)
  Sender: FDA-Public Use
  Company Number: NSADSS2003012170

PATIENT

DRUGS (2)
  1. REOPRO [Suspect]
     Dosage: 1 IN 1 AS NECESSARY, INTRAVENOUS DRIP
     Route: 041
  2. ANGIOMAX [Suspect]

REACTIONS (1)
  - ANAPHYLACTIC REACTION [None]
